FAERS Safety Report 6796174-8 (Version None)
Quarter: 2010Q2

REPORT INFORMATION
  Report Type: 
  Country: None (occurrence: None)
  Receive Date: 20100625
  Receipt Date: 20100618
  Transmission Date: 20101027
  Serious: Yes (Other)
  Sender: FDA-Public Use
  Company Number: FR-B.I. PHARMACEUTICALS,INC./RIDGEFIELD-2010-DE-03357GD

PATIENT
  Age: 74 Year
  Sex: Female

DRUGS (6)
  1. PRAMIPEXOLE [Suspect]
     Indication: RESTLESS LEGS SYNDROME
     Dosage: 0.27 MG
  2. HYDROXYZINE [Suspect]
     Indication: PREMEDICATION
     Dosage: 100 MG
     Route: 048
  3. DROPERIDOL [Suspect]
     Indication: GENERAL ANAESTHESIA
     Dosage: 0.5 MG
     Route: 042
  4. PROPOFOL [Concomitant]
     Indication: GENERAL ANAESTHESIA
     Dosage: 100 MG
     Route: 042
  5. MIDAZOLAM HCL [Concomitant]
     Indication: GENERAL ANAESTHESIA
     Dosage: 5 MG
     Route: 042
  6. SUFENTANYL [Concomitant]
     Indication: GENERAL ANAESTHESIA
     Dosage: 20 MCG
     Route: 042

REACTIONS (6)
  - RESTLESS LEGS SYNDROME [None]
  - SUBCUTANEOUS HAEMATOMA [None]
  - SUICIDAL IDEATION [None]
  - SUTURE RUPTURE [None]
  - SYSTOLIC HYPERTENSION [None]
  - TACHYCARDIA [None]
